FAERS Safety Report 16038332 (Version 1)
Quarter: 2019Q1

REPORT INFORMATION
  Report Type: Spontaneous
  Country: BR (occurrence: BR)
  Receive Date: 20190305
  Receipt Date: 20190305
  Transmission Date: 20190418
  Serious: Yes (Hospitalization)
  Sender: FDA-Public Use
  Company Number: PHHY2019BR046415

PATIENT
  Age: 71 Year
  Sex: Female
  Weight: 88 kg

DRUGS (2)
  1. DIOVAN HCT [Suspect]
     Active Substance: HYDROCHLOROTHIAZIDE\VALSARTAN
     Indication: PRODUCT USED FOR UNKNOWN INDICATION
     Route: 065
  2. FORASEQ [Suspect]
     Active Substance: BUDESONIDE\FORMOTEROL FUMARATE
     Indication: ASTHMA
     Dosage: UNK UNK, BID (1 MORNING AND 1AT NIGHT)
     Route: 055

REACTIONS (2)
  - Thrombosis [Recovering/Resolving]
  - Dyspnoea [Unknown]

NARRATIVE: CASE EVENT DATE: 201805
